FAERS Safety Report 19526064 (Version 1)
Quarter: 2021Q3

REPORT INFORMATION
  Report Type: Spontaneous
  Country: US (occurrence: US)
  Receive Date: 20210713
  Receipt Date: 20210713
  Transmission Date: 20211014
  Serious: Yes (Hospitalization)
  Sender: FDA-Public Use
  Company Number: None

PATIENT
  Sex: Female

DRUGS (12)
  1. BUMETANIDE. [Concomitant]
     Active Substance: BUMETANIDE
  2. ALREX [Concomitant]
     Active Substance: LOTEPREDNOL ETABONATE
  3. HYDROCHLOROT [Concomitant]
     Active Substance: HYDROCHLOROTHIAZIDE
  4. METOPROLOL TARTRATE. [Concomitant]
     Active Substance: METOPROLOL TARTRATE
  5. ROPINIROLE. [Concomitant]
     Active Substance: ROPINIROLE
  6. ESCITALOPRAM [Concomitant]
     Active Substance: ESCITALOPRAM OXALATE
  7. ONETOUCH [Concomitant]
  8. CINACALCET. [Suspect]
     Active Substance: CINACALCET
     Indication: TYPE 2 DIABETES MELLITUS
     Route: 048
     Dates: start: 20210615
  9. CANDESARTAN. [Concomitant]
     Active Substance: CANDESARTAN
  10. GLIMEPIRIDE. [Concomitant]
     Active Substance: GLIMEPIRIDE
  11. HYDRALAZINE [Concomitant]
     Active Substance: HYDRALAZINE HYDROCHLORIDE
  12. SOTALOL. [Concomitant]
     Active Substance: SOTALOL

REACTIONS (2)
  - Cardiac ablation [None]
  - Therapy interrupted [None]
